FAERS Safety Report 17928713 (Version 1)
Quarter: 2020Q2

REPORT INFORMATION
  Report Type: Spontaneous
  Country: US (occurrence: US)
  Receive Date: 20200622
  Receipt Date: 20200622
  Transmission Date: 20200714
  Serious: Yes (Hospitalization)
  Sender: FDA-Public Use
  Company Number: None

PATIENT
  Age: 68 Year
  Sex: Male
  Weight: 72 kg

DRUGS (1)
  1. LURASIDONE (LURASIDONE HCL 40MG TAB) [Suspect]
     Active Substance: LURASIDONE HYDROCHLORIDE
     Indication: SCHIZOAFFECTIVE DISORDER
     Route: 048
     Dates: start: 20200608, end: 20200613

REACTIONS (2)
  - Cerebrovascular accident [None]
  - Dysarthria [None]

NARRATIVE: CASE EVENT DATE: 20200613
